FAERS Safety Report 5420010-5 (Version None)
Quarter: 2007Q3

REPORT INFORMATION
  Report Type: 
  Country: None (occurrence: None)
  Receive Date: 20070820
  Receipt Date: 20070808
  Transmission Date: 20080115
  Serious: Yes (Hospitalization, Disabling, Other)
  Sender: FDA-Public Use
  Company Number: AU-PFIZER INC-2007060565

PATIENT
  Sex: Male

DRUGS (6)
  1. CABERGOLINE [Suspect]
  2. MADOPAR [Concomitant]
  3. MADOPAR HBS [Concomitant]
  4. MICARDIS [Concomitant]
  5. CARTIA XT [Concomitant]
  6. ZOLOFT [Concomitant]

REACTIONS (14)
  - ACTIVITIES OF DAILY LIVING IMPAIRED [None]
  - ANXIETY [None]
  - BRADYARRHYTHMIA [None]
  - CYANOSIS [None]
  - DISEASE PROGRESSION [None]
  - DYSPNOEA [None]
  - FALL [None]
  - FATIGUE [None]
  - GENERAL PHYSICAL HEALTH DETERIORATION [None]
  - LACRIMATION INCREASED [None]
  - MUSCULAR WEAKNESS [None]
  - PALLOR [None]
  - RHINORRHOEA [None]
  - SYNCOPE [None]
